FAERS Safety Report 20201336 (Version 3)
Quarter: 2022Q1

REPORT INFORMATION
  Report Type: Spontaneous
  Country: UA (occurrence: None)
  Receive Date: 20211217
  Receipt Date: 20220118
  Transmission Date: 20220423
  Serious: Yes (Other)
  Sender: FDA-Public Use
  Company Number: 2021A875544

PATIENT
  Age: 57 Year
  Sex: Female
  Weight: 80 kg

DRUGS (3)
  1. SYMBICORT [Suspect]
     Active Substance: BUDESONIDE\FORMOTEROL FUMARATE DIHYDRATE
     Indication: Asthma
     Dosage: 160/4.5, 160/4,5 MCG FOR 1 INHALATION TWO TIMES A DAY.
     Route: 055
     Dates: start: 202011, end: 202105
  2. SYMBICORT [Suspect]
     Active Substance: BUDESONIDE\FORMOTEROL FUMARATE DIHYDRATE
     Indication: Asthma
     Dosage: 320/9,320/9 MCG FOR 1 INHALATION FOR 2 TIMES A DAY
     Route: 055
     Dates: start: 202105, end: 202106
  3. SYMBICORT [Suspect]
     Active Substance: BUDESONIDE\FORMOTEROL FUMARATE DIHYDRATE
     Indication: Chronic obstructive pulmonary disease
     Dosage: 320/9,320/9 MCG FOR 1 INHALATION FOR 2 TIMES A DAY
     Route: 055
     Dates: start: 202105, end: 202106

REACTIONS (4)
  - COVID-19 [Recovered/Resolved]
  - Asthma [Recovered/Resolved]
  - Oral candidiasis [Recovered/Resolved]
  - Off label use [Recovered/Resolved]

NARRATIVE: CASE EVENT DATE: 20210101
